FAERS Safety Report 7399607-1 (Version None)
Quarter: 2011Q2

REPORT INFORMATION
  Report Type: 
  Country: None (occurrence: None)
  Receive Date: 20110407
  Receipt Date: 20110217
  Transmission Date: 20111010
  Serious: Yes (Other)
  Sender: FDA-Public Use
  Company Number: US-BAYER-201032450NA

PATIENT
  Sex: Female
  Weight: 88 kg

DRUGS (2)
  1. PREVACID [Concomitant]
     Dosage: 15 MG, QD
     Route: 048
  2. YAZ [Suspect]
     Indication: PRODUCT USED FOR UNKNOWN INDICATION
     Route: 048
     Dates: start: 20070801

REACTIONS (4)
  - CHOLECYSTITIS CHRONIC [None]
  - VOMITING [None]
  - NAUSEA [None]
  - BILIARY DYSKINESIA [None]
